FAERS Safety Report 9307115 (Version 1)
Quarter: 2013Q2

REPORT INFORMATION
  Report Type: Spontaneous
  Country: FR (occurrence: FR)
  Receive Date: 20130524
  Receipt Date: 20130524
  Transmission Date: 20140414
  Serious: Yes (Other)
  Sender: FDA-Public Use
  Company Number: FR-ROCHE-1210097

PATIENT
  Age: 66 Year
  Sex: Female

DRUGS (2)
  1. MABTHERA [Suspect]
     Indication: LYMPHOMA
     Route: 042
     Dates: start: 20130107, end: 20130128
  2. ZELITREX [Concomitant]

REACTIONS (1)
  - Drug eruption [Recovered/Resolved with Sequelae]
